FAERS Safety Report 22701005 (Version 2)
Quarter: 2025Q1

REPORT INFORMATION
  Report Type: Spontaneous
  Country: US (occurrence: US)
  Receive Date: 20230713
  Receipt Date: 20250103
  Transmission Date: 20250409
  Serious: No
  Sender: SANOFI AVENTIS
  Company Number: US-SA-SAC20230712000344

PATIENT
  Age: 69 Year
  Sex: Male

DRUGS (13)
  1. JEVTANA [Suspect]
     Active Substance: CABAZITAXEL
     Indication: Bladder cancer
     Dosage: 5 MG QW
     Route: 043
     Dates: start: 20230413
  2. JEVTANA [Suspect]
     Active Substance: CABAZITAXEL
     Dosage: 5MG QOW
     Route: 043
  3. JEVTANA [Suspect]
     Active Substance: CABAZITAXEL
     Dosage: 5 MG Q3W
     Route: 043
  4. JEVTANA [Suspect]
     Active Substance: CABAZITAXEL
     Dosage: 5 MG, Q6W
     Dates: start: 20220914
  5. NAPROXEN [Concomitant]
     Active Substance: NAPROXEN
  6. HYDROCORTISONE [Concomitant]
     Active Substance: HYDROCORTISONE
  7. OXYBUTYNIN CHLORIDE [Concomitant]
     Active Substance: OXYBUTYNIN CHLORIDE
  8. SODIUM BICARBONATE [Concomitant]
     Active Substance: SODIUM BICARBONATE
  9. CEPHALEXIN [Concomitant]
     Active Substance: CEPHALEXIN
  10. ATORVASTATIN CALCIUM [Concomitant]
     Active Substance: ATORVASTATIN CALCIUM
  11. FINASTERIDE [Concomitant]
     Active Substance: FINASTERIDE
  12. DOCUSATE CALCIUM [Concomitant]
     Active Substance: DOCUSATE CALCIUM
  13. ASPIRIN [Concomitant]
     Active Substance: ASPIRIN

REACTIONS (1)
  - Inappropriate schedule of product administration [Unknown]

NARRATIVE: CASE EVENT DATE: 20230609
